FAERS Safety Report 7893497-6 (Version None)
Quarter: 2011Q4

REPORT INFORMATION
  Report Type: 
  Country: None (occurrence: None)
  Receive Date: 20111104
  Receipt Date: 20111026
  Transmission Date: 20120403
  Serious: Yes (Other)
  Sender: FDA-Public Use
  Company Number: JP-GLAXOSMITHKLINE-A0951775A

PATIENT
  Sex: Female

DRUGS (6)
  1. AMOBAN [Concomitant]
     Indication: SCHIZOPHRENIA
  2. SILECE [Concomitant]
     Indication: SCHIZOPHRENIA
  3. CLONAZEPAM [Concomitant]
     Indication: SCHIZOPHRENIA
  4. NICORETTE [Suspect]
     Indication: SMOKING CESSATION THERAPY
     Dosage: 6GUM PER DAY
     Route: 002
     Dates: start: 20080101
  5. PROMETHAZINE HCL [Concomitant]
     Indication: SCHIZOPHRENIA
  6. DORAL [Concomitant]
     Indication: SCHIZOPHRENIA

REACTIONS (3)
  - INTENTIONAL DRUG MISUSE [None]
  - HALLUCINATION, AUDITORY [None]
  - NICOTINE DEPENDENCE [None]
